FAERS Safety Report 8070157-2 (Version None)
Quarter: 2012Q1

REPORT INFORMATION
  Report Type: 
  Country: None (occurrence: None)
  Receive Date: 20120125
  Receipt Date: 20120120
  Transmission Date: 20120608
  Serious: Yes (Death, Other)
  Sender: FDA-Public Use
  Company Number: DE-ROCHE-1022684

PATIENT

DRUGS (1)
  1. XELODA [Suspect]
     Indication: GASTRIC CANCER

REACTIONS (3)
  - NEOPLASM MALIGNANT [None]
  - ASCITES [None]
  - MALIGNANT PERITONEAL NEOPLASM [None]
